FAERS Safety Report 5744513-9 (Version None)
Quarter: 2008Q2

REPORT INFORMATION
  Report Type: 
  Country: None (occurrence: None)
  Receive Date: 20080520
  Receipt Date: 20080508
  Transmission Date: 20081010
  Serious: Yes (Life-Threatening, Hospitalization)
  Sender: FDA-Public Use
  Company Number: PL-ROCHE-427089

PATIENT
  Sex: Male
  Weight: 65 kg

DRUGS (2)
  1. PEGASYS [Suspect]
     Indication: HEPATITIS B
     Route: 058
     Dates: start: 20051117, end: 20051201
  2. RIBAVIRIN [Suspect]
     Indication: HEPATITIS B
     Route: 048
     Dates: start: 20051117, end: 20051201

REACTIONS (3)
  - CONVULSION [None]
  - FALL [None]
  - SKULL FRACTURED BASE [None]
